FAERS Safety Report 8244891-5 (Version None)
Quarter: 2012Q1

REPORT INFORMATION
  Report Type: 
  Country: None (occurrence: None)
  Receive Date: 20120329
  Receipt Date: 20110809
  Transmission Date: 20120608
  Serious: No
  Sender: FDA-Public Use
  Company Number: US-MYLANLABS-2011S1016806

PATIENT
  Sex: Male

DRUGS (2)
  1. DILAUDID [Concomitant]
     Route: 048
  2. FENTANYL-100 [Suspect]
     Dosage: CHANGED Q60H
     Route: 062

REACTIONS (4)
  - PAIN [None]
  - FATIGUE [None]
  - DRUG WITHDRAWAL SYNDROME [None]
  - FEELING COLD [None]
